FAERS Safety Report 6061184-5 (Version None)
Quarter: 2009Q1

REPORT INFORMATION
  Report Type: 
  Country: None (occurrence: None)
  Receive Date: 20090202
  Receipt Date: 20090122
  Transmission Date: 20090719
  Serious: Yes (Hospitalization)
  Sender: FDA-Public Use
  Company Number: FR-PFIZER INC-2009160611

PATIENT

DRUGS (7)
  1. AMLOR [Suspect]
     Route: 048
     Dates: start: 20030101
  2. VASTAREL [Suspect]
     Route: 048
     Dates: start: 20070101
  3. GANFORT [Suspect]
     Dates: start: 20070101
  4. COZAAR [Suspect]
     Route: 048
     Dates: start: 20030101
  5. KARDEGIC [Suspect]
     Route: 048
     Dates: start: 20030101
  6. NEXIUM [Suspect]
     Route: 048
     Dates: start: 20030101
  7. BROMAZEPAM [Concomitant]

REACTIONS (2)
  - PEMPHIGOID [None]
  - PRURITUS [None]
